FAERS Safety Report 9565950 (Version 2)
Quarter: 2013Q4

REPORT INFORMATION
  Report Type: Spontaneous
  Country: US (occurrence: US)
  Receive Date: 20130930
  Receipt Date: 20131112
  Transmission Date: 20140711
  Serious: No
  Sender: FDA-Public Use
  Company Number: US-PFIZER INC-2013279403

PATIENT
  Age: 5 Year
  Sex: Male

DRUGS (1)
  1. QUILLIVANT XR [Suspect]
     Indication: ATTENTION DEFICIT/HYPERACTIVITY DISORDER
     Dosage: 5 MG(2.5 MG, 2X/DAY) DAILY
     Route: 048
     Dates: start: 20130914, end: 20130915

REACTIONS (2)
  - Mania [Recovered/Resolved]
  - Mania [Recovered/Resolved]
